FAERS Safety Report 4485734-5 (Version None)
Quarter: 2004Q4

REPORT INFORMATION
  Report Type: 
  Country: None (occurrence: None)
  Receive Date: 20041026
  Receipt Date: 20041014
  Transmission Date: 20050328
  Serious: Yes (Other)
  Sender: FDA-Public Use
  Company Number: DE-JNJFOC-20040705331

PATIENT
  Sex: Female

DRUGS (2)
  1. DURAGESIC [Suspect]
     Route: 062
  2. PIROXICAM [Concomitant]
     Route: 030

REACTIONS (14)
  - APPLICATION SITE BLEEDING [None]
  - APPLICATION SITE ERYTHEMA [None]
  - CONTUSION [None]
  - DERMATITIS ALLERGIC [None]
  - DEVICE FAILURE [None]
  - INADEQUATE ANALGESIA [None]
  - MUSCLE ABSCESS [None]
  - OEDEMA PERIPHERAL [None]
  - PARAESTHESIA [None]
  - PHARMACEUTICAL PRODUCT COMPLAINT [None]
  - SKIN BLEEDING [None]
  - SKIN DESQUAMATION [None]
  - SKIN DISCOLOURATION [None]
  - SKIN NECROSIS [None]
